FAERS Safety Report 9695512 (Version 1)
Quarter: 2013Q4

REPORT INFORMATION
  Report Type: Spontaneous
  Country: US (occurrence: None)
  Receive Date: 20131118
  Receipt Date: 20131118
  Transmission Date: 20140711
  Serious: No
  Sender: FDA-Public Use
  Company Number: None

PATIENT
  Age: 35 Year
  Sex: Female

DRUGS (2)
  1. WELLBUTRIN XL [Suspect]
     Indication: DEPRESSION
     Dosage: 1 TAB QD ORAL
     Route: 048
  2. EFFEXOR XR [Suspect]
     Dosage: 1 TAB QD ORAL
     Route: 048

REACTIONS (6)
  - Urticaria [None]
  - Respiratory distress [None]
  - Back pain [None]
  - Malaise [None]
  - Pruritus [None]
  - Joint swelling [None]
